FAERS Safety Report 7029537-6 (Version None)
Quarter: 2010Q3

REPORT INFORMATION
  Report Type: 
  Country: None (occurrence: None)
  Receive Date: 20100930
  Receipt Date: 20100920
  Transmission Date: 20110219
  Serious: Yes (Death, Life-Threatening, Hospitalization, Other)
  Sender: FDA-Public Use
  Company Number: 2010AC000349

PATIENT
  Age: 74 Year
  Sex: Female

DRUGS (38)
  1. DIGOXIN [Suspect]
     Dosage: PO
     Route: 048
     Dates: start: 20071101, end: 20071201
  2. DIGOXIN [Suspect]
     Dosage: 0.250 MG; QD; PO
     Route: 048
     Dates: start: 20071114, end: 20071116
  3. DIGOXIN [Suspect]
     Indication: ATRIAL FIBRILLATION
     Dosage: 0.125 MG; QD; PO
     Route: 048
     Dates: start: 20050101, end: 20050201
  4. DIGOXIN [Suspect]
     Indication: ATRIAL FIBRILLATION
     Dosage: 0.250 MG; 1X; IV
     Route: 042
     Dates: start: 20050201, end: 20050201
  5. DIGOXIN [Suspect]
     Dosage: 0.125 MG; QD; PO
     Route: 048
     Dates: start: 20050201, end: 20050303
  6. DIGOXIN [Suspect]
     Dosage: PO
     Route: 048
     Dates: end: 20070201
  7. DIGOXIN [Suspect]
     Dosage: 0.500 MG; HS; PO
     Route: 048
     Dates: start: 20071112, end: 20071112
  8. DIGOXIN [Suspect]
     Dosage: 0.250 MG; BID; PO
     Route: 048
     Dates: start: 20071113, end: 20071113
  9. DIGOXIN [Suspect]
     Dosage: 0.125 MG; QD; PO
     Route: 048
     Dates: start: 20071121, end: 20071125
  10. DIGOXIN [Suspect]
     Dosage: 0.125 MG; QD; PO
     Route: 048
     Dates: start: 20071126, end: 20071127
  11. DIGOXIN [Suspect]
     Dosage: 0.125 MG; QD; PO
     Route: 048
     Dates: start: 20071201, end: 20071204
  12. DIGOXIN [Suspect]
     Dosage: 0.0625 MG; QD; PO
     Route: 048
     Dates: start: 20071205, end: 20071208
  13. DIGOXIN [Suspect]
     Dosage: 0.125 MG; X1; IV
     Route: 042
     Dates: start: 20071206, end: 20071206
  14. *SOTALOL [Concomitant]
  15. ZOLOFT [Concomitant]
  16. FOLGARD [Concomitant]
  17. COUMADIN [Concomitant]
  18. AVALIDE [Concomitant]
  19. ACIPHEX [Concomitant]
  20. POTASSIUM [Concomitant]
  21. PRAVASTATIN [Concomitant]
  22. LASIX [Concomitant]
  23. PRAVACHOL [Concomitant]
  24. CARDIZEM CD [Concomitant]
  25. MG OXIDE [Concomitant]
  26. CARTIA XT [Concomitant]
  27. FLAGYL [Concomitant]
  28. CYPROHEPTADINE HCL [Concomitant]
  29. MEGACE [Concomitant]
  30. ACETAMINOPHEN [Concomitant]
  31. ROCEPHIN [Concomitant]
  32. PLAVIX [Concomitant]
  33. BRONCHODILATOR THERAPY [Concomitant]
  34. CIPRO [Concomitant]
  35. VANCOMYCIN [Concomitant]
  36. CEFOTETAN [Concomitant]
  37. BETAPACE [Concomitant]
  38. OXYGEN [Concomitant]

REACTIONS (67)
  - AORTIC STENOSIS [None]
  - AORTIC VALVE CALCIFICATION [None]
  - AORTIC VALVE INCOMPETENCE [None]
  - AORTIC VALVE SCLEROSIS [None]
  - ARTHRALGIA [None]
  - ASPIRATION [None]
  - ATRIAL FIBRILLATION [None]
  - ATRIOVENTRICULAR BLOCK FIRST DEGREE [None]
  - BLOOD CULTURE POSITIVE [None]
  - BLOOD HOMOCYSTEINE INCREASED [None]
  - BUNDLE BRANCH BLOCK LEFT [None]
  - CARDIAC FAILURE [None]
  - CARDIAC MURMUR [None]
  - CARDIO-RESPIRATORY ARREST [None]
  - CAROTID ARTERIOSCLEROSIS [None]
  - CAROTID ARTERY STENOSIS [None]
  - CLOSTRIDIUM DIFFICILE COLITIS [None]
  - CONFUSIONAL STATE [None]
  - DECREASED APPETITE [None]
  - DEHYDRATION [None]
  - DIVERTICULUM [None]
  - DRUG LEVEL BELOW THERAPEUTIC [None]
  - ECONOMIC PROBLEM [None]
  - ELECTROCARDIOGRAM QT PROLONGED [None]
  - ELECTROCARDIOGRAM T WAVE ABNORMAL [None]
  - EPISTAXIS [None]
  - ESCHERICHIA URINARY TRACT INFECTION [None]
  - GAIT DISTURBANCE [None]
  - GASTRIC POLYPS [None]
  - GASTRITIS [None]
  - GASTROINTESTINAL HAEMORRHAGE [None]
  - HAEMOPTYSIS [None]
  - HAEMORRHOIDS [None]
  - HYPERTENSIVE HEART DISEASE [None]
  - HYPOKALAEMIA [None]
  - HYPOMAGNESAEMIA [None]
  - INGUINAL HERNIA [None]
  - INJURY [None]
  - ISCHAEMIC NEPHROPATHY [None]
  - MAJOR DEPRESSION [None]
  - MALNUTRITION [None]
  - METABOLIC ENCEPHALOPATHY [None]
  - MITRAL VALVE CALCIFICATION [None]
  - MITRAL VALVE INCOMPETENCE [None]
  - MOBILITY DECREASED [None]
  - NAUSEA [None]
  - ODYNOPHAGIA [None]
  - ORTHOPNOEA [None]
  - PAIN [None]
  - PALPITATIONS [None]
  - PNEUMONIA [None]
  - POLYURIA [None]
  - PULMONARY HYPERTENSION [None]
  - PULMONARY VALVE INCOMPETENCE [None]
  - RENAL CYST [None]
  - RENAL FAILURE ACUTE [None]
  - RENAL TUBULAR NECROSIS [None]
  - RIGHT VENTRICULAR FAILURE [None]
  - STAPHYLOCOCCAL INFECTION [None]
  - SUPRAVENTRICULAR EXTRASYSTOLES [None]
  - SUPRAVENTRICULAR TACHYCARDIA [None]
  - THROMBOPHLEBITIS [None]
  - TIBIA FRACTURE [None]
  - TREMOR [None]
  - TRICUSPID VALVE INCOMPETENCE [None]
  - UMBILICAL HERNIA [None]
  - UNEVALUABLE EVENT [None]
